FAERS Safety Report 7045058-9 (Version None)
Quarter: 2010Q3

REPORT INFORMATION
  Report Type: 
  Country: None (occurrence: None)
  Receive Date: 20100929
  Receipt Date: 20100608
  Transmission Date: 20110219
  Serious: No
  Sender: FDA-Public Use
  Company Number: US-WYE-H15558010

PATIENT
  Age: 47 Year
  Sex: Female
  Weight: 68.1 kg

DRUGS (6)
  1. PRISTIQ [Suspect]
     Indication: DEPRESSION
     Dosage: 50 MG 1X PER 1 DAY
     Dates: start: 20100501
  2. ABILIFY [Suspect]
     Indication: DEPRESSION
     Dosage: 5 MG 1X PER 1 DAY
     Dates: start: 20100501, end: 20100601
  3. COLAZAL (BALSALAZIDE DISODIUM) [Concomitant]
  4. DANAZOL [Concomitant]
  5. FOSAMAX [Concomitant]
  6. NORCO [Concomitant]

REACTIONS (4)
  - ABNORMAL DREAMS [None]
  - CONSTIPATION [None]
  - HUNGER [None]
  - WEIGHT INCREASED [None]
